FAERS Safety Report 15451794 (Version 1)
Quarter: 2018Q4

REPORT INFORMATION
  Report Type: Spontaneous
  Country: CA (occurrence: CA)
  Receive Date: 20181001
  Receipt Date: 20181001
  Transmission Date: 20190204
  Serious: Yes (Hospitalization)
  Sender: FDA-Public Use
  Company Number: CA-PFIZER INC-2018394055

PATIENT
  Age: 32 Year
  Sex: Female
  Weight: 91 kg

DRUGS (4)
  1. PEPCID [FAMOTIDINE] [Concomitant]
     Dosage: 40 MG, 1X/DAY
     Route: 048
  2. NOVAHISTEX DH [Interacting]
     Active Substance: HYDROCODONE BITARTRATE\PHENYLEPHRINE HYDROCHLORIDE
     Dosage: UNK
     Route: 048
  3. VASOTEC [ENALAPRIL MALEATE] [Concomitant]
     Dosage: 5 MG, 1X/DAY
     Route: 048
  4. ERYTHROMYCIN. [Suspect]
     Active Substance: ERYTHROMYCIN
     Dosage: UNK
     Route: 048

REACTIONS (3)
  - Rash [Recovered/Resolved]
  - Vomiting [Recovered/Resolved]
  - Drug interaction [Recovered/Resolved]
